FAERS Safety Report 24233052 (Version 1)
Quarter: 2024Q3

REPORT INFORMATION
  Report Type: Report from Study
  Country: US (occurrence: US)
  Receive Date: 20240821
  Receipt Date: 20240821
  Transmission Date: 20241017
  Serious: Yes (Disabling)
  Sender: BAYER
  Company Number: US-BAYER-2024A120145

PATIENT
  Sex: Female

DRUGS (1)
  1. KERENDIA [Suspect]
     Active Substance: FINERENONE
     Dosage: 10 MG
     Dates: start: 20240720

REACTIONS (1)
  - Disability [None]
